FAERS Safety Report 22665945 (Version 2)
Quarter: 2023Q4

REPORT INFORMATION
  Report Type: Report from Study
  Country: US (occurrence: US)
  Receive Date: 20230703
  Receipt Date: 20231026
  Transmission Date: 20240109
  Serious: No
  Sender: FDA-Public Use
  Company Number: US-IDORSIA-005552-2023-US

PATIENT
  Age: 63 Year
  Sex: Male

DRUGS (2)
  1. QUVIVIQ [Suspect]
     Active Substance: DARIDOREXANT
     Indication: Insomnia
     Dosage: 50 MG, QD
     Route: 048
     Dates: start: 202306, end: 202306
  2. IBUPROFEN [Concomitant]
     Active Substance: IBUPROFEN
     Indication: Arthritis

REACTIONS (3)
  - Drug ineffective [Unknown]
  - Nightmare [Recovered/Resolved]
  - Fatigue [Recovered/Resolved]

NARRATIVE: CASE EVENT DATE: 20230601
